FAERS Safety Report 5594633-7 (Version None)
Quarter: 2008Q1

REPORT INFORMATION
  Report Type: 
  Country: None (occurrence: None)
  Receive Date: 20080117
  Receipt Date: 20080108
  Transmission Date: 20080703
  Serious: No
  Sender: FDA-Public Use
  Company Number: US-BAXTER-2008BH000262

PATIENT
  Age: 33 Year
  Sex: Female
  Weight: 111 kg

DRUGS (4)
  1. ALBUMIN (HUMAN) USP 20% [Suspect]
     Indication: APHERESIS
     Route: 042
     Dates: start: 20070119, end: 20070126
  2. BETASERON [Concomitant]
     Indication: MULTIPLE SCLEROSIS
     Route: 058
     Dates: start: 20061201
  3. CYMBALTA [Concomitant]
     Indication: DRUG USE FOR UNKNOWN INDICATION
     Route: 048
     Dates: start: 20061201, end: 20070301
  4. SYNTHROID [Concomitant]
     Indication: HYPOTHYROIDISM
     Dates: start: 20040101

REACTIONS (6)
  - CONVULSION [None]
  - DIZZINESS [None]
  - DYSSTASIA [None]
  - HYPOTENSION [None]
  - MEMORY IMPAIRMENT [None]
  - PARAESTHESIA ORAL [None]
